FAERS Safety Report 16555249 (Version 2)
Quarter: 2019Q3

REPORT INFORMATION
  Report Type: Report from Study
  Country: MX (occurrence: MX)
  Receive Date: 20190710
  Receipt Date: 20190723
  Transmission Date: 20191004
  Serious: Yes (Other)
  Sender: FDA-Public Use
  Company Number: PHHY2019MX151882

PATIENT
  Age: 43 Year
  Sex: Female
  Weight: 58 kg

DRUGS (5)
  1. EXFORGE HCT [Suspect]
     Active Substance: AMLODIPINE BESYLATE\HYDROCHLOROTHIAZIDE\VALSARTAN
     Indication: BLOOD PRESSURE INCREASED
     Dosage: 1 DF, QD (AMLODIPINE 5 MG HYDROCHLOROTHIAZIDE 12. 5 MG, VALSARTAN 160 MG)
     Route: 048
     Dates: start: 20190218, end: 20190221
  2. TRAYENTA [Concomitant]
     Active Substance: LINAGLIPTIN
     Indication: DIABETES MELLITUS
     Dosage: 1 DF, QD (3 YEARS AGO)
     Route: 048
  3. METFORMIN [Concomitant]
     Active Substance: METFORMIN HYDROCHLORIDE
     Indication: DIABETES MELLITUS
     Dosage: 1 DF, TID (20 YEARS AGO)
     Route: 048
  4. INSULIN HUMAN [Concomitant]
     Active Substance: INSULIN HUMAN
     Indication: DIABETES MELLITUS
     Dosage: UNK
     Route: 058
  5. EXFORGE HCT [Suspect]
     Active Substance: AMLODIPINE BESYLATE\HYDROCHLOROTHIAZIDE\VALSARTAN
     Dosage: 0.5 DF, QD (AMLODIPINE 5 MG HYDROCHLOROTHIAZIDE 12. 5 MG, VALSARTAN 160 MG)
     Route: 048
     Dates: start: 20190222

REACTIONS (7)
  - Impaired healing [Not Recovered/Not Resolved]
  - Pelvic abscess [Recovering/Resolving]
  - Wrong technique in product usage process [Unknown]
  - Endometrial cancer [Unknown]
  - Uterine leiomyoma [Unknown]
  - Post procedural infection [Recovering/Resolving]
  - Blood pressure decreased [Recovering/Resolving]

NARRATIVE: CASE EVENT DATE: 20181210
